FAERS Safety Report 9190746 (Version 2)
Quarter: 2013Q2

REPORT INFORMATION
  Report Type: Spontaneous
  Country: US (occurrence: US)
  Receive Date: 20130326
  Receipt Date: 20130422
  Transmission Date: 20140414
  Serious: Yes (Hospitalization, Other)
  Sender: FDA-Public Use
  Company Number: PHHY2013US028709

PATIENT
  Age: 27 Year
  Sex: Male
  Weight: 86.17 kg

DRUGS (12)
  1. GILENYA [Suspect]
     Indication: MULTIPLE SCLEROSIS
     Dosage: 0.5 MG, QD
     Route: 048
     Dates: start: 20121220, end: 20130205
  2. FAMOTIDINE [Concomitant]
     Dosage: 20 MG, BID
  3. AMIODARONE [Concomitant]
     Dosage: 200 MG, BID
  4. FUROSEMIDE [Concomitant]
     Dosage: 20 MG, QD
  5. DILTIAZEM ER [Concomitant]
     Dosage: 180 MG, QD
  6. SEPTRA [Concomitant]
  7. PREDNISONE [Concomitant]
     Dosage: 3 TABS, BID
  8. ZOLPIDEM [Concomitant]
     Indication: SLEEP DISORDER
     Dosage: 5 MG, PRN
  9. SULFAMETHOXAZOLE AND TRIMETHOPRIM [Concomitant]
  10. METOPROLOL TARTRATE [Concomitant]
     Dosage: 2 TABS, UNK
  11. ZYRTEC [Concomitant]
     Indication: RASH
  12. ERGOCALCIFEROL [Concomitant]

REACTIONS (30)
  - Polymyositis [Recovering/Resolving]
  - Pleural effusion [Recovering/Resolving]
  - Atrial fibrillation [Recovering/Resolving]
  - Pneumonitis [Recovering/Resolving]
  - Liver function test abnormal [Recovering/Resolving]
  - Myocarditis [Unknown]
  - Cushingoid [Unknown]
  - Arrhythmia [Unknown]
  - Influenza like illness [Recovered/Resolved]
  - Pyrexia [Recovered/Resolved]
  - Cough [Recovered/Resolved]
  - Myalgia [Recovered/Resolved]
  - Oropharyngeal pain [Unknown]
  - Asthenia [Unknown]
  - Chills [Unknown]
  - Fall [Unknown]
  - Hyperhidrosis [Unknown]
  - Dry mouth [Unknown]
  - Injury [Unknown]
  - Contusion [Unknown]
  - Pain [Unknown]
  - Heart rate increased [Unknown]
  - Rash macular [Recovering/Resolving]
  - Erythema [Unknown]
  - Tachycardia [Unknown]
  - Hypersensitivity [Unknown]
  - Blood pressure increased [Unknown]
  - Herpes zoster [Unknown]
  - Pruritus [Unknown]
  - Dyspnoea [Unknown]
